FAERS Safety Report 24535682 (Version 1)
Quarter: 2024Q4

REPORT INFORMATION
  Report Type: Spontaneous
  Country: ES (occurrence: ES)
  Receive Date: 20241022
  Receipt Date: 20241022
  Transmission Date: 20250114
  Serious: No
  Sender: JAZZ
  Company Number: ES-JAZZ PHARMACEUTICALS-2024-ES-007317

PATIENT
  Sex: Male

DRUGS (9)
  1. SODIUM OXYBATE [Suspect]
     Active Substance: SODIUM OXYBATE
     Indication: Narcolepsy
     Dosage: 4.5 GRAM PER 24 HOURS
  2. SODIUM OXYBATE [Suspect]
     Active Substance: SODIUM OXYBATE
     Indication: Cataplexy
  3. VENLAFAXINE [Concomitant]
     Active Substance: VENLAFAXINE HYDROCHLORIDE
     Dosage: 4.5 GRAM PER 24 HOURS
  4. VENLAFAXINE [Concomitant]
     Active Substance: VENLAFAXINE HYDROCHLORIDE
     Dosage: FREQUENCY: 4.5 GRAM/ 24 HOURS
  5. MODAFINIL [Concomitant]
     Active Substance: MODAFINIL
     Dosage: 4.5 GRAM PER 24 HOURS
  6. MODAFINIL [Concomitant]
     Active Substance: MODAFINIL
     Dosage: FREQUENCY: 4.5 GRAM/ 24 HOURS
  7. ESOMEPRAZOLE [Concomitant]
     Active Substance: ESOMEPRAZOLE
     Dosage: 4.5 GRAM PER 24 HOURS
  8. ESOMEPRAZOLE [Concomitant]
     Active Substance: ESOMEPRAZOLE
     Dosage: FREQUENCY: 4.5 GRAM/ 24 HOURS
  9. ACETAMINOPHEN [Concomitant]
     Active Substance: ACETAMINOPHEN
     Dosage: FREQUENCY: 4.5 GRAM/ 24 HOURS

REACTIONS (1)
  - Drug ineffective [Unknown]
